FAERS Safety Report 7912413-1 (Version None)
Quarter: 2011Q4

REPORT INFORMATION
  Report Type: 
  Country: None (occurrence: None)
  Receive Date: 20111114
  Receipt Date: 20111109
  Transmission Date: 20120403
  Serious: Yes (Hospitalization, Other)
  Sender: FDA-Public Use
  Company Number: AR-PFIZER INC-2007076893

PATIENT
  Age: 49 Year
  Sex: Male

DRUGS (1)
  1. VARENICLINE TARTRATE [Suspect]
     Indication: SMOKING CESSATION THERAPY
     Dosage: 1 MG, 2X/DAY
     Route: 048
     Dates: start: 20070618, end: 20070801

REACTIONS (5)
  - PANIC ATTACK [None]
  - PERSECUTORY DELUSION [None]
  - CONFUSIONAL STATE [None]
  - SUICIDE ATTEMPT [None]
  - HYPERTENSION [None]
